FAERS Safety Report 25081819 (Version 3)
Quarter: 2025Q2

REPORT INFORMATION
  Report Type: Spontaneous
  Country: SK (occurrence: SK)
  Receive Date: 20250317
  Receipt Date: 20250407
  Transmission Date: 20250716
  Serious: Yes (Other)
  Sender: ABBVIE
  Company Number: SK-JNJFOC-20250323875

PATIENT

DRUGS (3)
  1. IMBRUVICA [Suspect]
     Active Substance: IBRUTINIB
     Indication: Chronic lymphocytic leukaemia
     Route: 048
     Dates: start: 202406, end: 202502
  2. IMBRUVICA [Suspect]
     Active Substance: IBRUTINIB
     Indication: Chronic lymphocytic leukaemia
     Route: 048
  3. VENETOCLAX [Suspect]
     Active Substance: VENETOCLAX
     Indication: Chronic lymphocytic leukaemia
     Dosage: LAST ADMINISTERED ON -FEB-2025
     Route: 048
     Dates: start: 202406, end: 202502

REACTIONS (15)
  - Leukocytosis [Unknown]
  - Petechiae [Unknown]
  - Pneumonia [Unknown]
  - Infection [Unknown]
  - Infusion related reaction [Unknown]
  - Diarrhoea [Recovering/Resolving]
  - Hyponatraemia [Unknown]
  - Hypertension [Unknown]
  - Neutropenia [Unknown]
  - Tumour lysis syndrome [Unknown]
  - Atrial fibrillation [Unknown]
  - Thrombocytopenia [Unknown]
  - Rash [Recovered/Resolved]
  - Haemoptysis [Recovered/Resolved]
  - Rash [Unknown]
